FAERS Safety Report 9988816 (Version 1)
Quarter: 2013Q4

REPORT INFORMATION
  Report Type: Spontaneous
  Country: BE (occurrence: None)
  Receive Date: 20131021
  Receipt Date: 20131021
  Transmission Date: 20140711
  Serious: Yes (Hospitalization)
  Sender: FDA-Public Use
  Company Number: 2013SA097686

PATIENT
  Age: 61 Year
  Sex: Male

DRUGS (2)
  1. ENOXAPARIN SODIUM [Suspect]
     Indication: SPLENIC INFARCTION
     Dosage: 80 MILLIGRAM(S); TWICE A DAY; UNKNOWN
  2. ASPIRIN [Concomitant]

REACTIONS (7)
  - Splenic rupture [None]
  - Tachycardia [None]
  - Haemoglobin decreased [None]
  - Hypotension [None]
  - Hyperhidrosis [None]
  - Hypovolaemic shock [None]
  - Peritoneal haemorrhage [None]
